FAERS Safety Report 7987927-9 (Version None)
Quarter: 2011Q4

REPORT INFORMATION
  Report Type: 
  Country: None (occurrence: None)
  Receive Date: 20111216
  Receipt Date: 20101118
  Transmission Date: 20120403
  Serious: No
  Sender: FDA-Public Use
  Company Number: US-BRISTOL-MYERS SQUIBB COMPANY-15394257

PATIENT
  Age: 13 Year
  Sex: Male
  Weight: 57 kg

DRUGS (3)
  1. ABILIFY [Suspect]
     Dosage: IN THE MORNING
  2. CLONIDINE [Concomitant]
  3. DEPAKOTE ER [Concomitant]
     Dosage: AT BEDTIME

REACTIONS (1)
  - TARDIVE DYSKINESIA [None]
